FAERS Safety Report 6789111-3 (Version None)
Quarter: 2010Q2

REPORT INFORMATION
  Report Type: 
  Country: None (occurrence: None)
  Receive Date: 20100623
  Receipt Date: 20080710
  Transmission Date: 20101027
  Serious: No
  Sender: FDA-Public Use
  Company Number: US-PFIZER INC-2008055675

PATIENT
  Age: 41 Year
  Sex: Female

DRUGS (1)
  1. GEODON [Suspect]

REACTIONS (8)
  - ANXIETY [None]
  - DISCOMFORT [None]
  - DRUG INEFFECTIVE [None]
  - FORMICATION [None]
  - MALAISE [None]
  - NAUSEA [None]
  - RESTLESSNESS [None]
  - WITHDRAWAL SYNDROME [None]
